FAERS Safety Report 19759182 (Version 1)
Quarter: 2021Q3

REPORT INFORMATION
  Report Type: Spontaneous
  Country: ES (occurrence: ES)
  Receive Date: 20210827
  Receipt Date: 20210827
  Transmission Date: 20211014
  Serious: Yes (Life-Threatening, Hospitalization, Disabling)
  Sender: FDA-Public Use
  Company Number: ES-MYLANLABS-2021M1055603

PATIENT
  Age: 48 Year
  Sex: Female
  Weight: 50 kg

DRUGS (5)
  1. DOLQUINE [Concomitant]
     Active Substance: HYDROXYCHLOROQUINE SULFATE
     Dosage: 200 MILLIGRAM
     Route: 048
     Dates: start: 20181010
  2. PANTOPRAZOL MABO [Concomitant]
     Dosage: 20 MILLIGRAM, QD
     Route: 048
     Dates: start: 20180104
  3. PARACETAMOL CINFA [Concomitant]
     Dosage: 1 GRAM, Q8H
     Route: 048
     Dates: start: 20171226
  4. TARDYFERON [Concomitant]
     Active Substance: FERROUS SULFATE
     Indication: HYPOCHROMIC ANAEMIA
     Dosage: 1 DOSAGE FORM, QD
     Route: 048
     Dates: start: 20201026
  5. AMCHAFIBRIN 500 MG COMPRIMIDOS, ?CIDO TRANEX?MICO [Suspect]
     Active Substance: TRANEXAMIC ACID
     Indication: HEAVY MENSTRUAL BLEEDING
     Dosage: 2 COMP. / 8 HS ? 5 DAYS A MONTH
     Route: 048
     Dates: start: 20201026, end: 20210301

REACTIONS (1)
  - Ischaemic stroke [Recovered/Resolved with Sequelae]

NARRATIVE: CASE EVENT DATE: 20210301
